FAERS Safety Report 6781235-X (Version None)
Quarter: 2010Q2

REPORT INFORMATION
  Report Type: 
  Country: None (occurrence: None)
  Receive Date: 20100616
  Receipt Date: 20100530
  Transmission Date: 20101027
  Serious: No
  Sender: FDA-Public Use
  Company Number: THQ2010A01616

PATIENT
  Sex: Male

DRUGS (1)
  1. PIOGLITAZONE HCL [Suspect]
     Indication: TYPE 2 DIABETES MELLITUS
     Dosage: 15 MG (15 MG, 1 IN 1 D) PER ORAL
     Route: 048
     Dates: start: 20100301

REACTIONS (2)
  - GLYCOSYLATED HAEMOGLOBIN INCREASED [None]
  - THROMBOCYTOPENIA [None]
